FAERS Safety Report 19483227 (Version 1)
Quarter: 2021Q3

REPORT INFORMATION
  Report Type: Spontaneous
  Country: US (occurrence: US)
  Receive Date: 20210701
  Receipt Date: 20210701
  Transmission Date: 20211014
  Serious: No
  Sender: FDA-Public Use
  Company Number: US-AVERITAS PHARMA, INC.-2020-108376

PATIENT
  Age: 71 Year
  Sex: Female
  Weight: 109.77 kg

DRUGS (1)
  1. QUTENZA [Suspect]
     Active Substance: CAPSAICIN
     Indication: DIABETIC NEUROPATHY
     Dosage: 4 DOSAGE FORM, ONCE
     Route: 061
     Dates: start: 20200921, end: 20200921

REACTIONS (3)
  - Sensory disturbance [Recovered/Resolved]
  - Application site exfoliation [Recovered/Resolved]
  - Application site vesicles [Recovered/Resolved]
